FAERS Safety Report 6497425-X (Version None)
Quarter: 2009Q4

REPORT INFORMATION
  Report Type: 
  Country: None (occurrence: None)
  Receive Date: 20091211
  Receipt Date: 20091126
  Transmission Date: 20100525
  Serious: Yes (Hospitalization)
  Sender: FDA-Public Use
  Company Number: 8042373

PATIENT
  Sex: Female
  Weight: 14.8 kg

DRUGS (7)
  1. KEPPRA [Suspect]
     Indication: CONVULSION
     Dosage: (300 MG BID ORAL)
     Route: 048
     Dates: start: 20090121
  2. KEPPRA [Suspect]
     Indication: EPILEPSY
     Dosage: (300 MG BID ORAL)
     Route: 048
     Dates: start: 20090121
  3. TRIMETHOPRIM [Concomitant]
  4. DOMPERIDONE [Concomitant]
  5. HYOSCINE [Concomitant]
  6. VALPROATE SODIUM [Concomitant]
  7. LAMOTRIGINE [Concomitant]

REACTIONS (4)
  - AGITATION [None]
  - DEHYDRATION [None]
  - NAUSEA [None]
  - VOMITING [None]
